FAERS Safety Report 4277936-8 (Version None)
Quarter: 2004Q1

REPORT INFORMATION
  Report Type: 
  Country: None (occurrence: None)
  Receive Date: 20040121
  Receipt Date: 20040113
  Transmission Date: 20041129
  Serious: Yes (Death, Life-Threatening, Hospitalization)
  Sender: FDA-Public Use
  Company Number: 200410093DE

PATIENT
  Age: 65 Year
  Sex: Male
  Weight: 115 kg

DRUGS (40)
  1. LASIX [Suspect]
     Indication: RENAL FAILURE
     Dosage: SEE IMAGE
     Route: 042
     Dates: start: 20010720, end: 20010720
  2. LASIX [Suspect]
     Indication: RENAL FAILURE
     Dosage: SEE IMAGE
     Route: 042
     Dates: start: 20010725, end: 20010725
  3. SAROTEN [Suspect]
     Indication: DEPRESSION
     Dosage: 10 10 25 MG TID PO
     Route: 048
     Dates: start: 20010705, end: 20010802
  4. DIAZEPAM [Suspect]
     Indication: AGITATION
     Dosage: 5 MG ONCE IV
     Route: 042
     Dates: start: 20010720, end: 20010720
  5. CIRPOBAY TABLETS [Suspect]
     Indication: CHRONIC OBSTRUCTIVE AIRWAYS DISEASE EXACERBATED
     Dosage: QD PO
     Route: 048
     Dates: start: 20010720, end: 20010724
  6. ALT INSULIN [Suspect]
     Indication: DIABETES MELLITUS
     Dosage: PRN SC
     Route: 058
     Dates: start: 20010720, end: 20010802
  7. ACC 600 TABLETS [Suspect]
     Indication: CHRONIC OBSTRUCTIVE AIRWAYS DISEASE
     Dosage: 600 MG QD PO
     Route: 048
     Dates: start: 20010720, end: 20010802
  8. ATROVENT [Suspect]
     Indication: CHRONIC OBSTRUCTIVE AIRWAYS DISEASE
     Dosage: PRN INH
     Dates: start: 20010720, end: 20010802
  9. BRONCHORETARD [Suspect]
     Indication: CHRONIC OBSTRUCTIVE AIRWAYS DISEASE
     Dosage: 350 MG QD PO
     Route: 048
     Dates: start: 20010720, end: 20010802
  10. BRONCHOSPASMIN SOLUTION FOR INJECTION [Suspect]
     Indication: CHRONIC OBSTRUCTIVE AIRWAYS DISEASE
     Dosage: QD IV
     Route: 042
     Dates: start: 20010720, end: 20010802
  11. FORADIL [Suspect]
     Indication: CHRONIC OBSTRUCTIVE AIRWAYS DISEASE
     Dosage: PRN INH
     Dates: start: 20010720, end: 20010802
  12. SOLU DECORTIN H SOLUTION FOR INJECTION [Suspect]
     Indication: CHRONIC OBSTRUCTIVE AIRWAYS DISEASE
     Dosage: 100 0 50 MG BID IV
     Route: 042
     Dates: start: 20010720, end: 20010802
  13. PANTOZOLO TABLETS [Suspect]
     Indication: PROPHYLAXIS
     Dosage: QD PO
     Route: 048
     Dates: start: 20010720, end: 20010802
  14. LEFAX TABLETS [Suspect]
     Indication: FLATULENCE
     Dosage: ONCE PO
     Route: 048
     Dates: start: 20010721, end: 20010721
  15. ZYLORIC TABLETS [Suspect]
     Indication: HYPERURICAEMIA
     Dosage: QD PO
     Route: 048
     Dates: start: 20010721, end: 20010802
  16. NITRO SOLUTION FOR INJECTION [Suspect]
     Indication: CARDIAC ASTHMA
     Dosage: 50 50 ML BID IV
     Route: 042
     Dates: start: 20010723, end: 20010724
  17. HEPARIN [Suspect]
     Indication: THROMBOSIS PROPHYLAXIS
     Dosage: 2500 IU QD IV
     Route: 042
     Dates: start: 20010723, end: 20010802
  18. NORVASC [Suspect]
     Indication: HYPERTENSION
     Dosage: 10 MG QD PO
     Route: 048
     Dates: start: 20010723, end: 20010802
  19. VOLMAC TABLETS [Suspect]
     Indication: CHRONIC OBSTRUCTIVE AIRWAYS DISEASE
     Dosage: 8 MG QD PO
     Route: 048
     Dates: start: 20010723, end: 20010802
  20. UNAT TABLETS [Suspect]
     Indication: OEDEMA DUE TO CARDIAC DISEASE
     Dosage: QD PO
     Route: 048
     Dates: start: 20010723, end: 20010802
  21. BIFITERAL SIRUP SYRUP [Suspect]
     Indication: CONSTIPATION
     Dosage: 20 ML ONCE PO
     Route: 048
     Dates: start: 20010724, end: 20010724
  22. AQUAPHOR TABLET TABLETS [Suspect]
     Indication: OEDEMA DUE TO CARDIAC DISEASE
     Dosage: QD PO
     Route: 048
     Dates: start: 20010724, end: 20010802
  23. ASPIRIN [Suspect]
     Indication: THROMBOSIS PROPHYLAXIS
     Dosage: QD PO
     Route: 048
     Dates: start: 20010725, end: 20010802
  24. SORTIS TABLETS [Suspect]
     Indication: HYPERLIPIDAEMIA
     Dosage: QD PO
     Route: 048
     Dates: start: 20010725, end: 20010802
  25. CIBACEN TABLETS [Suspect]
     Indication: CARDIAC FAILURE
     Dosage: QD PO
     Route: 048
     Dates: start: 20010726, end: 20010802
  26. DULCOLAX [Suspect]
     Indication: CONSTIPATION
     Dosage: ONCE
     Dates: start: 20010727, end: 20010727
  27. MURCET [Concomitant]
  28. THEOPHYLLINE [Concomitant]
  29. BAMBEC [Concomitant]
  30. SEREVENT [Concomitant]
  31. JUNIK [Concomitant]
  32. DECORTIN [Concomitant]
  33. ISOPTIN TAB [Concomitant]
  34. ISOPTIN TAB [Concomitant]
  35. VIGANTOLETTEN [Concomitant]
  36. CALCIUM [Concomitant]
  37. RINGER LSG [Concomitant]
  38. KALINOR [Concomitant]
  39. K CL TAB [Concomitant]
  40. ATOSIL TROPFEN [Concomitant]

REACTIONS (6)
  - HAEMODYNAMIC INSTABILITY [None]
  - PNEUMONIA [None]
  - RENAL FAILURE [None]
  - RESPIRATORY FAILURE [None]
  - SEPTIC SHOCK [None]
  - TOXIC EPIDERMAL NECROLYSIS [None]
